FAERS Safety Report 4874815-X (Version None)
Quarter: 2006Q1

REPORT INFORMATION
  Report Type: 
  Country: None (occurrence: None)
  Receive Date: 20060104
  Receipt Date: 20051220
  Transmission Date: 20060701
  Serious: Yes (Life-Threatening, Hospitalization)
  Sender: FDA-Public Use
  Company Number: 2005169588

PATIENT
  Age: 84 Year
  Sex: Male

DRUGS (2)
  1. ATORVASTATIN CALCIUM [Suspect]
     Indication: DYSLIPIDAEMIA
     Dosage: 10 MG (10 MG, 1 IN 1 D) ORAL
     Route: 048
     Dates: start: 20041201
  2. LATANOPROST/TIMOLOL (LATANOPROST, TIMOLOL) [Concomitant]

REACTIONS (2)
  - HYPERTENSION [None]
  - VENOUS OCCLUSION [None]
